FAERS Safety Report 20542665 (Version 3)
Quarter: 2022Q1

REPORT INFORMATION
  Report Type: Report from Study
  Country: BR (occurrence: BR)
  Receive Date: 20220302
  Receipt Date: 20220330
  Transmission Date: 20220424
  Serious: Yes (Hospitalization, Other)
  Sender: FDA-Public Use
  Company Number: BR-NOVARTISPH-NVSC2021BR269617

PATIENT
  Age: 61 Year
  Sex: Female
  Weight: 83 kg

DRUGS (11)
  1. LETROZOLE [Suspect]
     Active Substance: LETROZOLE
     Indication: Breast cancer
     Dosage: 2.5 MG, QD
     Route: 065
  2. SERTRALINE [Suspect]
     Active Substance: SERTRALINE HYDROCHLORIDE
     Indication: Product used for unknown indication
     Dosage: UNK
     Route: 065
  3. ALPRAZOLAM [Suspect]
     Active Substance: ALPRAZOLAM
     Indication: Depression
     Dosage: 3 MG, QD
     Route: 065
  4. ALPRAZOLAM [Suspect]
     Active Substance: ALPRAZOLAM
     Indication: Anxiety
  5. IBRANCE [Concomitant]
     Active Substance: PALBOCICLIB
     Indication: Product used for unknown indication
     Dosage: 125 MG, QD (FOR THREE WEEKS, EVERY 28 DAYS)
     Route: 065
  6. EXEMESTANE [Concomitant]
     Active Substance: EXEMESTANE
     Indication: Breast cancer female
     Dosage: 25 MG, QD
     Route: 048
     Dates: start: 20210409
  7. ZOLEDRONIC ACID [Concomitant]
     Active Substance: ZOLEDRONIC ACID
     Indication: Breast cancer female
     Dosage: 4 MG, (90\90 DAYS)
     Route: 065
     Dates: start: 20180709
  8. ZOLEDRONIC ACID [Concomitant]
     Active Substance: ZOLEDRONIC ACID
     Indication: Bone cancer
     Dosage: 4 MG (28/28 DAYS)
     Route: 042
  9. ZOLEDRONIC ACID [Concomitant]
     Active Substance: ZOLEDRONIC ACID
     Indication: Breast cancer
  10. BUSPIRONE HYDROCHLORIDE [Concomitant]
     Active Substance: BUSPIRONE HYDROCHLORIDE
     Indication: Depression
     Dosage: 10 MG, QD
     Route: 048
  11. BUSPIRONE HYDROCHLORIDE [Concomitant]
     Active Substance: BUSPIRONE HYDROCHLORIDE
     Indication: Anxiety

REACTIONS (12)
  - SARS-CoV-2 test positive [Recovered/Resolved]
  - Atelectasis [Unknown]
  - Condition aggravated [Unknown]
  - Aortic aneurysm [Unknown]
  - Bone lesion [Unknown]
  - Neoplasm [Unknown]
  - Bone pain [Unknown]
  - Emphysema [Unknown]
  - Lymphadenopathy [Unknown]
  - Goitre [Unknown]
  - Soft tissue mass [Unknown]
  - Pathological fracture [Unknown]

NARRATIVE: CASE EVENT DATE: 20210501
